FAERS Safety Report 21327601 (Version 1)
Quarter: 2022Q3

REPORT INFORMATION
  Report Type: Spontaneous
  Country: US (occurrence: US)
  Receive Date: 20220913
  Receipt Date: 20220913
  Transmission Date: 20221026
  Serious: Yes (Other)
  Sender: FDA-Public Use
  Company Number: US-SA-SAC20220912001734

PATIENT

DRUGS (3)
  1. ZANTAC [Suspect]
     Active Substance: RANITIDINE HYDROCHLORIDE
     Dosage: UNK PRESCRIPTION ZANTAC
     Route: 048
     Dates: start: 1993, end: 2019
  2. RANITIDINE HYDROCHLORIDE [Suspect]
     Active Substance: RANITIDINE HYDROCHLORIDE
     Dosage: UNK OTC RANITIDINE
     Route: 048
     Dates: start: 1993, end: 2019
  3. RANITIDINE HYDROCHLORIDE [Suspect]
     Active Substance: RANITIDINE HYDROCHLORIDE
     Dosage: UNK PRESCRIPTION RANITIDINE
     Route: 048
     Dates: start: 1993, end: 2019

REACTIONS (1)
  - Breast cancer [Unknown]
